FAERS Safety Report 12759540 (Version 4)
Quarter: 2017Q4

REPORT INFORMATION
  Report Type: Report from Study
  Country: TW (occurrence: TW)
  Receive Date: 20160919
  Receipt Date: 20171223
  Transmission Date: 20180320
  Serious: Yes (Other)
  Sender: FDA-Public Use
  Company Number: PHHY2016TW128194

PATIENT
  Age: 60 Year
  Sex: Female
  Weight: 50.6 kg

DRUGS (39)
  1. EXJADE [Suspect]
     Active Substance: DEFERASIROX
     Dosage: 750 OT, UNK
     Route: 048
     Dates: start: 20170708
  2. KASCOAL [Concomitant]
     Indication: ABDOMINAL DISTENSION
     Dosage: 40 MG, UNK
     Route: 065
     Dates: start: 20160912
  3. ACTEIN [Concomitant]
     Indication: BRONCHIECTASIS
     Dosage: 600 MG, UNK
     Route: 048
     Dates: start: 20170804, end: 20170817
  4. ASCORBIC ACID. [Concomitant]
     Active Substance: ASCORBIC ACID
     Dosage: 150 MG, UNK
     Route: 048
     Dates: start: 20160930, end: 20161118
  5. FOLIC ACID. [Concomitant]
     Active Substance: FOLIC ACID
     Indication: MYELODYSPLASTIC SYNDROME
     Dosage: 5 MG, UNK
     Route: 048
     Dates: start: 20160805, end: 20160923
  6. FOLIC ACID. [Concomitant]
     Active Substance: FOLIC ACID
     Dosage: 5 MG, UNK
     Route: 048
     Dates: start: 20160930, end: 20161117
  7. EXJADE [Suspect]
     Active Substance: DEFERASIROX
     Dosage: 625 OT, UNK
     Route: 048
     Dates: start: 20170610, end: 20170707
  8. PYRIDOXIN HCL [Concomitant]
     Dosage: 5 MG, UNK
     Route: 048
     Dates: start: 20170113
  9. SOLU-CORTEF [Concomitant]
     Active Substance: HYDROCORTISONE SODIUM SUCCINATE
     Dosage: 100 MG, UNK
     Route: 048
     Dates: start: 20160826, end: 20160826
  10. RIBOFLAVIN [Concomitant]
     Active Substance: RIBOFLAVIN
     Indication: MYELODYSPLASTIC SYNDROME
     Dosage: 5 MG, UNK
     Route: 048
     Dates: start: 20160805, end: 20160923
  11. THIAMINE HCL [Concomitant]
     Active Substance: THIAMINE HYDROCHLORIDE
     Dosage: 10 MG, UNK
     Route: 048
     Dates: start: 20160930, end: 20161118
  12. ACETYLCYSTEINE. [Concomitant]
     Active Substance: ACETYLCYSTEINE
     Indication: BRONCHIECTASIS
     Dosage: 600 MG, UNK
     Route: 048
     Dates: start: 20161216, end: 20170106
  13. CALCIUM [Concomitant]
     Active Substance: CALCIUM
     Indication: MYELODYSPLASTIC SYNDROME
     Dosage: 60 MG, UNK
     Route: 048
     Dates: start: 20160805, end: 20160923
  14. NICOTINAMIDE [Concomitant]
     Active Substance: NIACINAMIDE
     Dosage: 50 MG, UNK
     Route: 048
     Dates: start: 20170113
  15. KASCOAL [Concomitant]
     Indication: ABDOMINAL DISCOMFORT
  16. CALCIUM [Concomitant]
     Active Substance: CALCIUM
     Dosage: 60 MG, UNK
     Route: 048
     Dates: start: 20170113
  17. ASCORBIC ACID. [Concomitant]
     Active Substance: ASCORBIC ACID
     Indication: MYELODYSPLASTIC SYNDROME
     Dosage: 150 MG, UNK
     Route: 048
     Dates: start: 20160805, end: 20160923
  18. PYRIDOXIN HCL [Concomitant]
     Dosage: 5 MG, UNK
     Route: 048
     Dates: start: 20160930, end: 20161118
  19. SOLU-CORTEF [Concomitant]
     Active Substance: HYDROCORTISONE SODIUM SUCCINATE
     Indication: PROPHYLAXIS
     Dosage: 100 MG, UNK
     Route: 048
     Dates: start: 20160805, end: 20160805
  20. EXJADE [Suspect]
     Active Substance: DEFERASIROX
     Indication: MYELODYSPLASTIC SYNDROME
     Dosage: 500 MG, UNK
     Route: 048
     Dates: start: 20160826, end: 20160923
  21. EXJADE [Suspect]
     Active Substance: DEFERASIROX
     Dosage: 250 OT, UNK
     Route: 048
     Dates: start: 20161216, end: 20170217
  22. REGROW [Concomitant]
     Dosage: 60 MG, UNK
     Route: 048
     Dates: start: 20170804, end: 20170817
  23. SOLU-CORTEF [Concomitant]
     Active Substance: HYDROCORTISONE SODIUM SUCCINATE
     Dosage: 100 MG, UNK
     Route: 048
     Dates: start: 20160930, end: 20160930
  24. RIBOFLAVIN [Concomitant]
     Active Substance: RIBOFLAVIN
     Dosage: 5 MG, UNK
     Route: 048
     Dates: start: 20170113
  25. THIAMINE HCL [Concomitant]
     Active Substance: THIAMINE HYDROCHLORIDE
     Indication: MYELODYSPLASTIC SYNDROME
     Dosage: 10 MG, UNK
     Route: 048
     Dates: start: 20160805, end: 20160923
  26. EXJADE [Suspect]
     Active Substance: DEFERASIROX
     Dosage: 125 OT, UNK
     Route: 048
     Dates: start: 20161021, end: 20161216
  27. EXJADE [Suspect]
     Active Substance: DEFERASIROX
     Dosage: 500 AND 300 OT, UNK
     Route: 048
     Dates: start: 20170415, end: 20170609
  28. PANTOTHENATE [Concomitant]
     Indication: MYELODYSPLASTIC SYNDROME
     Dosage: 20 MG, UNK
     Route: 048
     Dates: start: 20160805, end: 20160923
  29. PANTOTHENATE [Concomitant]
     Dosage: 20 MG, UNK
     Route: 048
     Dates: start: 20170113
  30. REGROW [Concomitant]
     Indication: BRONCHIECTASIS
     Dosage: 60 MG, UNK
     Route: 048
     Dates: start: 20161216, end: 20170106
  31. NICOTINAMIDE [Concomitant]
     Active Substance: NIACINAMIDE
     Dosage: 50 MG, UNK
     Route: 048
     Dates: start: 20160930, end: 20161118
  32. EXJADE [Suspect]
     Active Substance: DEFERASIROX
     Dosage: 375 OT, UNK
     Route: 048
     Dates: start: 20170218, end: 20170414
  33. CALCIUM [Concomitant]
     Active Substance: CALCIUM
     Dosage: 60 MG, UNK
     Route: 048
     Dates: start: 20160930, end: 20161118
  34. DIPHENIDOL [Concomitant]
     Active Substance: DIPHENIDOL
     Indication: PROPHYLAXIS
     Dosage: 25 MG, UNK
     Route: 048
     Dates: start: 20160805, end: 20160812
  35. NICOTINAMIDE [Concomitant]
     Active Substance: NIACINAMIDE
     Indication: MYELODYSPLASTIC SYNDROME
     Dosage: 5 MG, UNK
     Route: 048
     Dates: start: 20160805, end: 20160923
  36. ASCORBIC ACID. [Concomitant]
     Active Substance: ASCORBIC ACID
     Dosage: 150 MG, UNK
     Route: 048
     Dates: start: 20170113
  37. PYRIDOXIN HCL [Concomitant]
     Indication: MYELODYSPLASTIC SYNDROME
     Dosage: 5 MG, UNK
     Route: 048
     Dates: start: 20160805, end: 20160923
  38. RIBOFLAVIN [Concomitant]
     Active Substance: RIBOFLAVIN
     Dosage: 5 MG, UNK
     Route: 048
     Dates: start: 20160930, end: 20161118
  39. THIAMINE HCL [Concomitant]
     Active Substance: THIAMINE HYDROCHLORIDE
     Dosage: 10 MG, UNK
     Route: 048
     Dates: start: 20170113

REACTIONS (4)
  - Haemorrhoids [Recovered/Resolved]
  - Haematochezia [Recovered/Resolved]
  - Abdominal discomfort [Not Recovered/Not Resolved]
  - Abdominal pain [Recovered/Resolved]

NARRATIVE: CASE EVENT DATE: 20160826
